FAERS Safety Report 15562960 (Version 2)
Quarter: 2024Q2

REPORT INFORMATION
  Report Type: Spontaneous
  Country: US (occurrence: US)
  Receive Date: 20181029
  Receipt Date: 20240416
  Transmission Date: 20240716
  Serious: No
  Sender: FDA-Public Use
  Company Number: US-JNJFOC-20181028020

PATIENT
  Sex: Male

DRUGS (6)
  1. RISPERDAL [Suspect]
     Active Substance: RISPERIDONE
     Indication: Product used for unknown indication
     Route: 048
     Dates: start: 1995, end: 2004
  2. RISPERDAL CONSTA [Suspect]
     Active Substance: RISPERIDONE
     Indication: Product used for unknown indication
     Route: 030
     Dates: start: 1995, end: 2004
  3. RISPERDAL CONSTA [Suspect]
     Active Substance: RISPERIDONE
  4. RISPERDAL CONSTA [Suspect]
     Active Substance: RISPERIDONE
  5. RISPERDAL CONSTA [Suspect]
     Active Substance: RISPERIDONE
  6. RISPERIDONE [Suspect]
     Active Substance: RISPERIDONE
     Indication: Product used for unknown indication
     Route: 048
     Dates: start: 1999

REACTIONS (3)
  - Emotional disorder [Unknown]
  - Gynaecomastia [Unknown]
  - Weight increased [Unknown]
